FAERS Safety Report 8795865 (Version 2)
Quarter: 2012Q4

REPORT INFORMATION
  Report Type: 
  Country: PE (occurrence: PE)
  Receive Date: 20120920
  Receipt Date: 20121017
  Transmission Date: 20130627
  Serious: Yes (Death, Hospitalization)
  Sender: FDA-Public Use
  Company Number: PE-PFIZER INC-2012229940

PATIENT
  Age: 52 Year
  Sex: Male

DRUGS (1)
  1. VFEND [Suspect]
     Dosage: UNK
     Route: 042
     Dates: start: 201207, end: 201207

REACTIONS (1)
  - Aplastic anaemia [Fatal]
